FAERS Safety Report 19920844 (Version 2)
Quarter: 2021Q4

REPORT INFORMATION
  Report Type: Spontaneous
  Country: US (occurrence: US)
  Receive Date: 20211005
  Receipt Date: 20211123
  Transmission Date: 20220303
  Serious: Yes (Other)
  Sender: FDA-Public Use
  Company Number: US-BAYER-2021A224183

PATIENT
  Age: 24 Year
  Sex: Male

DRUGS (3)
  1. KOGENATE FS [Suspect]
     Active Substance: ANTIHEMOPHILIC FACTOR, HUMAN RECOMBINANT
     Indication: Factor VIII deficiency
     Dosage: 4500 IU, QOD; 4050-4950 SLOVE IV PUSH EVERY OTHER DAY FOR PROPHY
     Route: 042
     Dates: start: 202103
  2. KOGENATE FS [Suspect]
     Active Substance: ANTIHEMOPHILIC FACTOR, HUMAN RECOMBINANT
     Indication: Factor VIII deficiency
     Dosage: INFUSE 4500U (4050-4950) EVERY 12-24 HOURS AS NEEDED FOR SIGNIFICANT INJURY, BLEED, OR PRIOR TO SURG
     Route: 042
     Dates: start: 202103
  3. KOGENATE FS [Suspect]
     Active Substance: ANTIHEMOPHILIC FACTOR, HUMAN RECOMBINANT
     Indication: Factor VIII deficiency
     Dosage: 3 DF; USED TO STREAT SPONTANEOUS RIGHT ANKLE BLEED
     Route: 042
     Dates: start: 202109

REACTIONS (1)
  - Haemarthrosis [None]

NARRATIVE: CASE EVENT DATE: 20210901
